FAERS Safety Report 11770988 (Version 1)
Quarter: 2015Q4

REPORT INFORMATION
  Report Type: Spontaneous
  Country: IT (occurrence: IT)
  Receive Date: 20151123
  Receipt Date: 20151123
  Transmission Date: 20160304
  Serious: Yes (Other)
  Sender: FDA-Public Use
  Company Number: IT-HOSPIRA-3082320

PATIENT
  Age: 67 Year
  Sex: Male
  Weight: 68 kg

DRUGS (2)
  1. ABRAXANE [Suspect]
     Active Substance: PACLITAXEL
     Indication: PANCREATIC CARCINOMA
     Route: 042
     Dates: start: 20150605, end: 20151106
  2. GEMCITABINE HYDROCHLORIDE. [Suspect]
     Active Substance: GEMCITABINE HYDROCHLORIDE
     Indication: PANCREATIC CARCINOMA
     Route: 042
     Dates: start: 20150605, end: 20151106

REACTIONS (1)
  - Ejection fraction decreased [Unknown]

NARRATIVE: CASE EVENT DATE: 20151109
